FAERS Safety Report 21492912 (Version 1)
Quarter: 2022Q4

REPORT INFORMATION
  Report Type: Report from Study
  Country: US (occurrence: US)
  Receive Date: 20221021
  Receipt Date: 20221021
  Transmission Date: 20230113
  Serious: Yes (Other)
  Sender: FDA-Public Use
  Company Number: US-NOVARTISTESTPH-NVSC2022US234855

PATIENT
  Age: 72 Year
  Sex: Male

DRUGS (4)
  1. DOCETAXEL [Suspect]
     Active Substance: DOCETAXEL
     Indication: Hormone-refractory prostate cancer
     Dosage: (FOR 3 MONTHS), 6 DOSES OF DOCETAXEL (VIA PORT
     Route: 065
  2. DOCETAXEL [Suspect]
     Active Substance: DOCETAXEL
     Indication: Prostate cancer
  3. LEUPROLIDE [Concomitant]
     Active Substance: LEUPROLIDE
     Indication: Prostate cancer
     Dosage: UNK
     Route: 065
  4. LUPRON [Concomitant]
     Active Substance: LEUPROLIDE ACETATE
     Indication: Prostate cancer
     Dosage: (FOR 3 YEARS)
     Route: 065

REACTIONS (12)
  - Metastasis [Unknown]
  - Metastases to bone [Unknown]
  - Multiple fractures [Unknown]
  - Bone pain [Unknown]
  - Bone loss [Unknown]
  - Fatigue [Unknown]
  - Peripheral swelling [Unknown]
  - Asthenia [Unknown]
  - Gynaecomastia [Unknown]
  - Muscle atrophy [Unknown]
  - General physical health deterioration [Unknown]
  - Pain in extremity [Unknown]
